FAERS Safety Report 9154433 (Version 2)
Quarter: 2013Q1

REPORT INFORMATION
  Report Type: Spontaneous
  Country: US (occurrence: None)
  Receive Date: 20130207
  Receipt Date: 20130222
  Transmission Date: 20140127
  Serious: Yes (Hospitalization, Other)
  Sender: FDA-Public Use
  Company Number: 2013EXPUS00072

PATIENT
  Age: 65 Year
  Sex: Female
  Weight: 81 kg

DRUGS (13)
  1. EXPAREL [Suspect]
     Indication: POSTOPERATIVE ANALGESIA
     Dates: start: 20130122, end: 20130122
  2. MORPHINE SULFATE [Suspect]
     Indication: PROCEDURAL PAIN
     Dosage: 4 MG, 2X IVP
     Dates: start: 20130122, end: 20130122
  3. GABAPENTIN [Suspect]
     Indication: PAIN PROPHYLAXIS
     Route: 048
     Dates: start: 20130122, end: 20130122
  4. DIOVAN HCT (HYDROCHLOROTHIAZIDE, VALSARTAN [Concomitant]
  5. NORVASC(AMLODIPINE BESILATE) [Concomitant]
  6. ESTRATEST (ESTROGENS ESTERIFIED, METHYLTESTOSTERONE) [Concomitant]
  7. LIPITOR(ATORVASTATIN CALCIUM) [Concomitant]
  8. ASPIRIN(ACETYLSALICYLIC ACID) [Concomitant]
  9. VITAMIN C [Concomitant]
  10. VITAMIN D (ERGOCALCIFEROL) [Concomitant]
  11. GLUCOSAMINE(GLUCOSAMINE) [Concomitant]
  12. CALCIUM(CALCIUM) [Concomitant]
  13. ST. JOHN^S WORT (ST. JOHN^S WORT) [Concomitant]

REACTIONS (14)
  - Hypotension [None]
  - Presyncope [None]
  - Dystonia [None]
  - Dysarthria [None]
  - Anaemia postoperative [None]
  - Leukocytosis [None]
  - Atelectasis [None]
  - Pyrexia [None]
  - Pruritus [None]
  - Hypoxia [None]
  - Anxiety [None]
  - Extrapyramidal disorder [None]
  - Pupillary reflex impaired [None]
  - Hypopnoea [None]
